FAERS Safety Report 23630371 (Version 1)
Quarter: 2024Q1

REPORT INFORMATION
  Report Type: Spontaneous
  Country: FR (occurrence: FR)
  Receive Date: 20240314
  Receipt Date: 20240314
  Transmission Date: 20240409
  Serious: Yes (Hospitalization, Other)
  Sender: FDA-Public Use
  Company Number: FR-AFSSAPS-PB2024000206

PATIENT
  Age: 80 Year
  Sex: Male

DRUGS (4)
  1. AMOXICILLIN [Suspect]
     Active Substance: AMOXICILLIN
     Indication: Superinfection
     Dosage: UNK
     Route: 048
     Dates: start: 20230725, end: 20230728
  2. CLAVULANIC ACID [Suspect]
     Active Substance: CLAVULANIC ACID
     Indication: Superinfection
     Dosage: UNK
     Route: 048
     Dates: start: 20230725, end: 20230728
  3. CEFOTAXIME [Suspect]
     Active Substance: CEFOTAXIME SODIUM
     Indication: Superinfection
     Dosage: 3 GRAM, ONCE A DAY
     Route: 042
     Dates: start: 20230718, end: 20230720
  4. SPIRAMYCIN [Suspect]
     Active Substance: SPIRAMYCIN
     Indication: Superinfection
     Dosage: 9 MEGA-INTERNATIONAL UNIT, ONCE A DAY
     Route: 048
     Dates: start: 20230801, end: 20230807

REACTIONS (1)
  - Clostridium difficile colitis [Recovered/Resolved]

NARRATIVE: CASE EVENT DATE: 20230702
